FAERS Safety Report 20422853 (Version 1)
Quarter: 2022Q1

REPORT INFORMATION
  Report Type: Spontaneous
  Country: US (occurrence: None)
  Receive Date: 20220203
  Receipt Date: 20220203
  Transmission Date: 20220423
  Serious: Yes (Other)
  Sender: FDA-Public Use
  Company Number: None

PATIENT

DRUGS (2)
  1. ETESEVIMAB [Suspect]
     Active Substance: ETESEVIMAB
  2. BAMLANIVIMAB [Suspect]
     Active Substance: BAMLANIVIMAB

REACTIONS (2)
  - Chest discomfort [None]
  - Burning sensation [None]

NARRATIVE: CASE EVENT DATE: 20211202
